FAERS Safety Report 10220904 (Version 1)
Quarter: 2014Q2

REPORT INFORMATION
  Report Type: Spontaneous
  Country: US (occurrence: None)
  Receive Date: 20140605
  Receipt Date: 20140605
  Transmission Date: 20141212
  Serious: Yes (Other)
  Sender: FDA-Public Use
  Company Number: None

PATIENT
  Age: 45 Year
  Sex: Female
  Weight: 80.74 kg

DRUGS (2)
  1. PICATO .015 [Suspect]
     Indication: HEAVY EXPOSURE TO ULTRAVIOLET LIGHT
     Dosage: 3?ONCE DAILY?APPLIED TO A SURFACE, USUALLY THE SKIN
     Route: 061
     Dates: start: 20140527, end: 20140528
  2. PICATO .015 [Suspect]
     Indication: PRECANCEROUS SKIN LESION
     Dosage: 3?ONCE DAILY?APPLIED TO A SURFACE, USUALLY THE SKIN
     Route: 061
     Dates: start: 20140527, end: 20140528

REACTIONS (6)
  - Application site burn [None]
  - Facial pain [None]
  - Swelling face [None]
  - Blister [None]
  - Skin exfoliation [None]
  - Scab [None]
